FAERS Safety Report 9246156 (Version 1)
Quarter: 2013Q2

REPORT INFORMATION
  Report Type: Report from Study
  Country: US (occurrence: US)
  Receive Date: 20130422
  Receipt Date: 20130422
  Transmission Date: 20140414
  Serious: Yes (Hospitalization, Other)
  Sender: FDA-Public Use
  Company Number: US-ABBOTT-13P-163-1076335-00

PATIENT
  Age: 55 Year
  Sex: Male
  Weight: 81.72 kg

DRUGS (18)
  1. HUMIRA [Suspect]
     Indication: CROHN^S DISEASE
     Route: 058
     Dates: start: 20120326, end: 20120326
  2. HUMIRA [Suspect]
     Route: 058
     Dates: start: 20120409, end: 20120409
  3. HUMIRA [Suspect]
     Route: 058
     Dates: start: 20120423, end: 201211
  4. METHOTREXATE [Concomitant]
     Indication: CROHN^S DISEASE
  5. ENTOCORT [Concomitant]
     Indication: CROHN^S DISEASE
  6. LIALDA [Concomitant]
     Indication: CROHN^S DISEASE
  7. FOLIC ACID [Concomitant]
     Indication: CROHN^S DISEASE
  8. VITAMIN B12 [Concomitant]
     Indication: HYPOVITAMINOSIS
  9. VITAMIN D [Concomitant]
     Indication: HYPOVITAMINOSIS
  10. CALCIUM [Concomitant]
     Indication: MINERAL SUPPLEMENTATION
  11. OMEPRAZOLE [Concomitant]
     Indication: GASTROOESOPHAGEAL REFLUX DISEASE
     Route: 048
  12. ZYRTEC [Concomitant]
     Indication: RHINITIS ALLERGIC
  13. VYRANSE [Concomitant]
     Indication: ATTENTION DEFICIT/HYPERACTIVITY DISORDER
     Dates: start: 2009
  14. MAXALT [Concomitant]
     Indication: MIGRAINE
  15. LOSARTAN [Concomitant]
     Indication: HYPERTENSION
  16. FINASTERIDE [Concomitant]
     Indication: PROSTATE CANCER
  17. CIALIS [Concomitant]
     Indication: BENIGN PROSTATIC HYPERPLASIA
  18. ZOLOFT [Concomitant]
     Indication: DEPRESSION

REACTIONS (4)
  - Nodule [Not Recovered/Not Resolved]
  - Crohn^s disease [Recovered/Resolved]
  - Intestinal stenosis [Recovered/Resolved]
  - Nausea [Recovered/Resolved]
